FAERS Safety Report 5009339-2 (Version None)
Quarter: 2006Q2

REPORT INFORMATION
  Report Type: 
  Country: None (occurrence: None)
  Receive Date: 20060524
  Receipt Date: 20060516
  Transmission Date: 20061013
  Serious: Yes (Hospitalization)
  Sender: FDA-Public Use
  Company Number: FR-BRISTOL-MYERS SQUIBB COMPANY-13380258

PATIENT
  Age: 75 Year
  Sex: Female

DRUGS (8)
  1. APROVEL TABS 75 MG [Suspect]
     Indication: HYPERTENSION
     Route: 048
     Dates: start: 20051207, end: 20060223
  2. PENTASA [Concomitant]
     Indication: ENTERITIS
     Dosage: DURATION: MORE THAN 15 YEARS
     Route: 048
     Dates: start: 19900615
  3. PENTASA [Concomitant]
     Indication: CROHN'S DISEASE
     Dosage: DURATION: MORE THAN 15 YEARS
     Route: 048
     Dates: start: 19900615
  4. CLARITIN [Concomitant]
     Indication: HYPERSENSITIVITY
     Dosage: DURATION: MORE THAN 15 YEARS
     Route: 048
     Dates: start: 19900615
  5. CLARITIN [Concomitant]
     Indication: CROHN'S DISEASE
     Dosage: DURATION: MORE THAN 15 YEARS
     Route: 048
     Dates: start: 19900615
  6. DICODIN [Concomitant]
     Indication: ANAL SPASM
     Dosage: DURATION: MORE THAN 15 YEARS
     Route: 048
     Dates: start: 19900615
  7. DICODIN [Concomitant]
     Indication: CROHN'S DISEASE
     Dosage: DURATION: MORE THAN 15 YEARS
     Route: 048
     Dates: start: 19900615
  8. LERCAN [Concomitant]
     Indication: HYPERTENSION
     Dates: end: 20051207

REACTIONS (1)
  - TOXIC SKIN ERUPTION [None]
